FAERS Safety Report 15706075 (Version 2)
Quarter: 2018Q4

REPORT INFORMATION
  Report Type: Spontaneous
  Country: US (occurrence: US)
  Receive Date: 20181210
  Receipt Date: 20181212
  Transmission Date: 20190205
  Serious: Yes (Other)
  Sender: FDA-Public Use
  Company Number: US-ASTRAZENECA-2018SF60739

PATIENT
  Age: 43 Day
  Sex: Male
  Weight: 42.2 kg

DRUGS (6)
  1. TOBRAMYCIN. [Concomitant]
     Active Substance: TOBRAMYCIN
  2. SYMBICORT [Suspect]
     Active Substance: BUDESONIDE\FORMOTEROL FUMARATE DIHYDRATE
     Indication: CHRONIC OBSTRUCTIVE PULMONARY DISEASE
     Dosage: 160/4.5 MCG TWO PUFFS TWICE DAILY
     Route: 055
  3. NS [Concomitant]
     Active Substance: SODIUM CHLORIDE
     Dosage: DAILY
  4. ALBUTEROL. [Concomitant]
     Active Substance: ALBUTEROL
  5. PULMICORT RESPULES [Suspect]
     Active Substance: BUDESONIDE
     Indication: ASTHMA
     Route: 055
  6. DORNASE ALFA. [Concomitant]
     Active Substance: DORNASE ALFA

REACTIONS (17)
  - Osteogenesis imperfecta [Unknown]
  - Asthma [Unknown]
  - Scoliosis [Unknown]
  - Lung disorder [Unknown]
  - Chest discomfort [Unknown]
  - Dependence on respirator [Unknown]
  - Respiratory failure [Unknown]
  - Condition aggravated [Unknown]
  - Tidal volume decreased [Unknown]
  - Product use issue [Unknown]
  - Intentional product misuse [Unknown]
  - Seizure [Unknown]
  - Autonomic nervous system imbalance [Unknown]
  - Product dose omission [Unknown]
  - Drug ineffective [Unknown]
  - Off label use [Unknown]
  - Meningitis [Unknown]
